FAERS Safety Report 23634118 (Version 2)
Quarter: 2024Q2

REPORT INFORMATION
  Report Type: Spontaneous
  Country: US (occurrence: US)
  Receive Date: 20240314
  Receipt Date: 20240516
  Transmission Date: 20240715
  Serious: No
  Sender: FDA-Public Use
  Company Number: USA--2024-US-000114

PATIENT
  Age: 68 Year
  Sex: Male

DRUGS (1)
  1. LATANOPROST [Suspect]
     Active Substance: LATANOPROST
     Dosage: 1 GGT OU QD
     Dates: end: 20240202

REACTIONS (3)
  - Eye pruritus [Unknown]
  - Ocular hyperaemia [Unknown]
  - Peripheral swelling [Unknown]
